FAERS Safety Report 22219550 (Version 1)
Quarter: 2023Q2

REPORT INFORMATION
  Report Type: Spontaneous
  Country: CN (occurrence: CN)
  Receive Date: 20230417
  Receipt Date: 20230417
  Transmission Date: 20230722
  Serious: Yes (Other)
  Sender: FDA-Public Use
  Company Number: CN-ELI_LILLY_AND_COMPANY-CN202304005556

PATIENT
  Age: 54 Year
  Sex: Male

DRUGS (2)
  1. IXEKIZUMAB [Suspect]
     Active Substance: IXEKIZUMAB
     Indication: Psoriasis
     Dosage: 160 MG, WEEKLY (1/W)
     Route: 058
  2. IXEKIZUMAB [Suspect]
     Active Substance: IXEKIZUMAB
     Dosage: 80 MG, EVERY TWO WEEKS
     Route: 058

REACTIONS (1)
  - Neurodermatitis [Recovering/Resolving]
